FAERS Safety Report 9805983 (Version 5)
Quarter: 2014Q4

REPORT INFORMATION
  Report Type: Spontaneous
  Country: GB (occurrence: GB)
  Receive Date: 20140109
  Receipt Date: 20141022
  Transmission Date: 20150529
  Serious: Yes (Other)
  Sender: FDA-Public Use
  Company Number: PHFR2013GB007161

PATIENT
  Sex: Female

DRUGS (1)
  1. CLOZARIL [Suspect]
     Active Substance: CLOZAPINE
     Dosage: UNK
     Route: 048
     Dates: start: 20071026, end: 20131117

REACTIONS (4)
  - Mental disorder [Recovering/Resolving]
  - Lethargy [Recovering/Resolving]
  - Malaise [Recovering/Resolving]
  - Psychotic disorder [Recovering/Resolving]
